FAERS Safety Report 7243759-0 (Version None)
Quarter: 2011Q1

REPORT INFORMATION
  Report Type: 
  Country: None (occurrence: None)
  Receive Date: 20110125
  Receipt Date: 20110121
  Transmission Date: 20110831
  Serious: No
  Sender: FDA-Public Use
  Company Number: US-PFIZER INC-2011015645

PATIENT
  Sex: Female
  Weight: 61.2 kg

DRUGS (1)
  1. ADVIL CONGESTION RELIEF [Suspect]
     Indication: NASOPHARYNGITIS
     Dosage: UNK
     Route: 048
     Dates: start: 20110101

REACTIONS (6)
  - NASOPHARYNGITIS [None]
  - LACRIMATION INCREASED [None]
  - NASAL CONGESTION [None]
  - HEADACHE [None]
  - SNEEZING [None]
  - MALAISE [None]
